FAERS Safety Report 4324862-1 (Version None)
Quarter: 2004Q1

REPORT INFORMATION
  Report Type: 
  Country: None (occurrence: None)
  Receive Date: 20040322
  Receipt Date: 20040317
  Transmission Date: 20041129
  Serious: Yes (Death)
  Sender: FDA-Public Use
  Company Number: 2004IC000046

PATIENT
  Sex: Male

DRUGS (4)
  1. FLUOROURACIL [Suspect]
     Indication: GASTRIC CANCER
     Dosage: 3.5 GM;X1;INTRAVENOUS
     Route: 042
     Dates: start: 19950512, end: 19950516
  2. FLUOROURACIL [Suspect]
     Indication: GASTRIC CANCER
     Dosage: 3.5 GM;X1;INTRAVENOUS
     Route: 042
     Dates: start: 19950608, end: 19950608
  3. PARAPLATIN [Concomitant]
  4. FARMORUBICIN [Concomitant]

REACTIONS (3)
  - ACCIDENTAL OVERDOSE [None]
  - DEVICE FAILURE [None]
  - MEDICATION ERROR [None]
